FAERS Safety Report 21458866 (Version 1)
Quarter: 2022Q4

REPORT INFORMATION
  Report Type: Report from Study
  Country: BE (occurrence: BE)
  Receive Date: 20221014
  Receipt Date: 20221014
  Transmission Date: 20230113
  Serious: Yes (Death)
  Sender: FDA-Public Use
  Company Number: BE-ABBVIE-4154622

PATIENT
  Age: 78 Year
  Sex: Male
  Weight: 83 kg

DRUGS (14)
  1. CARBIDOPA\LEVODOPA [Suspect]
     Active Substance: CARBIDOPA\LEVODOPA
     Indication: Parkinson^s disease
     Dosage: MD: 3.0 ML, CD: 5.9 ML/HR, ED: 1.7 ML, CND: 4.5 ML/HR; DURING 24 HOURS
     Route: 050
     Dates: start: 20220525
  2. CARBIDOPA\LEVODOPA [Suspect]
     Active Substance: CARBIDOPA\LEVODOPA
     Route: 050
     Dates: start: 20140818
  3. CARBIDOPA\LEVODOPA [Suspect]
     Active Substance: CARBIDOPA\LEVODOPA
     Dosage: MD: 3.0 ML, CD: 5.9 ML/HR, ED: 2.0 ML, CND: 4.9 ML/HR; DURING 24 HOURS
     Route: 050
     Dates: start: 20220322, end: 20220525
  4. CARBIDOPA\LEVODOPA [Suspect]
     Active Substance: CARBIDOPA\LEVODOPA
     Dosage: MD: 3.0 ML, CD: 6.0 ML/HR, ED: 1.7 ML, CND: 4.9 ML/HR; DURING 24 HOURS
     Route: 050
     Dates: start: 20211222, end: 20220322
  5. PRAMIPEXOLE [Concomitant]
     Active Substance: PRAMIPEXOLE
     Indication: Product used for unknown indication
     Dosage: FORM STRENGTH: 1.05 MG, 1 TABLET, AT 08:00 HRS
     Route: 065
  6. PRAMIPEXOLE [Concomitant]
     Active Substance: PRAMIPEXOLE
     Indication: Product used for unknown indication
     Dosage: FORM STRENGTH: 2.1 MG, AT 08:00 AND 20:00 HRS
     Route: 065
  7. BENSERAZIDE\LEVODOPA [Concomitant]
     Active Substance: BENSERAZIDE\LEVODOPA
     Indication: Product used for unknown indication
     Dosage: AT 08:00 HRS
     Route: 065
  8. INDAPAMIDE\PERINDOPRIL [Concomitant]
     Active Substance: INDAPAMIDE\PERINDOPRIL
     Indication: Product used for unknown indication
     Dosage: 0.5 TABLET
     Route: 065
  9. TRAZODONE HYDROCHLORIDE [Concomitant]
     Active Substance: TRAZODONE HYDROCHLORIDE
     Indication: Product used for unknown indication
     Dosage: AT 21:00 HRS
     Route: 065
  10. Prolopa dispersible [Concomitant]
     Indication: Product used for unknown indication
     Dosage: 10 TABLETS THROUGHOUT THE DAY VIA DRINK EVERY OTHER HOUR
     Route: 065
  11. Prolopa dispersible [Concomitant]
     Indication: Product used for unknown indication
     Dosage: 2 TO 3 TABLETS, AFTER 20:00 HRS
     Route: 065
  12. AZILECT [Concomitant]
     Active Substance: RASAGILINE MESYLATE
     Indication: Product used for unknown indication
     Dosage: AT 08:00 HRS
     Route: 065
  13. XANAX [Concomitant]
     Active Substance: ALPRAZOLAM
     Indication: Product used for unknown indication
     Dosage: FORM STRENGTH: 0.5 MG, AT 08:00, 12:00 AND 18:00 HRS
     Route: 065
  14. Akton [Concomitant]
     Indication: Product used for unknown indication
     Route: 065

REACTIONS (1)
  - Death [Fatal]

NARRATIVE: CASE EVENT DATE: 20220902
